FAERS Safety Report 6790882-0 (Version None)
Quarter: 2010Q2

REPORT INFORMATION
  Report Type: 
  Country: None (occurrence: None)
  Receive Date: 20100624
  Receipt Date: 20100617
  Transmission Date: 20101027
  Serious: Yes (Hospitalization)
  Sender: FDA-Public Use
  Company Number: A0866802A

PATIENT
  Sex: Female
  Weight: 38 kg

DRUGS (3)
  1. SERETIDE [Suspect]
     Indication: CHRONIC OBSTRUCTIVE PULMONARY DISEASE
     Dosage: 1PUFF TWICE PER DAY
     Route: 055
     Dates: start: 20040101
  2. ATACAND [Concomitant]
     Dosage: 1TAB PER DAY
     Route: 048
     Dates: start: 20070101
  3. ATROVENT [Concomitant]
     Route: 055
     Dates: start: 20000101

REACTIONS (2)
  - DYSPNOEA [None]
  - PULMONARY EMBOLISM [None]
